FAERS Safety Report 25974122 (Version 1)
Quarter: 2025Q4

REPORT INFORMATION
  Report Type: Spontaneous
  Country: US (occurrence: None)
  Receive Date: 20251028
  Receipt Date: 20251028
  Transmission Date: 20260118
  Serious: Yes (Other)
  Sender: FDA-CTU
  Company Number: None

PATIENT
  Age: 65 Year
  Sex: Male
  Weight: 82 kg

DRUGS (1)
  1. VANCOMYCIN [Suspect]
     Active Substance: VANCOMYCIN
     Indication: Pharyngitis
     Dosage: FREQUENCY : ONCE;?
     Route: 041
     Dates: start: 20251010, end: 20251010

REACTIONS (3)
  - Nausea [None]
  - Vomiting [None]
  - Blood pressure diastolic decreased [None]

NARRATIVE: CASE EVENT DATE: 20251010
